FAERS Safety Report 5768989-6 (Version None)
Quarter: 2008Q2

REPORT INFORMATION
  Report Type: 
  Country: None (occurrence: None)
  Receive Date: 20080610
  Receipt Date: 20080530
  Transmission Date: 20081010
  Serious: Yes (Hospitalization)
  Sender: FDA-Public Use
  Company Number: 6043303

PATIENT
  Age: 84 Year
  Sex: Male

DRUGS (9)
  1. DETENSIEL             (BISOPROLOL FUMARATE) [Suspect]
     Indication: HYPERTENSION
     Dosage: 10 MG (10 MG, 1 D) ORAL
     Route: 048
  2. CORDARONE [Suspect]
     Indication: DRUG USE FOR UNKNOWN INDICATION
     Dosage: 1 DOSAGE FORMS (1 DOSAGE FORMS, 1 D) ORAL
     Route: 048
  3. SERMION (CAPSULE) (NICERGOLINE) [Suspect]
     Indication: ARTERIAL DISORDER
     Dosage: 1 TO 3 PER DAY (1 D) ORAL
     Route: 048
  4. PREVISCAN      (TABLET) (FLUINDIONE) [Suspect]
     Indication: PROPHYLAXIS
     Dosage: 1.75 DOSAGE FORMS (1.75 DOSAGE FORMS, 1 D) ORAL
     Route: 048
  5. NITRIDERM TTS      (GLYCERYL TRINITRATE) [Concomitant]
  6. ORBENIN CAP [Concomitant]
  7. CEFIXIME CHEWABLE [Concomitant]
  8. ALLOPURINOL [Concomitant]
  9. PANTOPRAZOLE SODIUM [Concomitant]

REACTIONS (5)
  - C-REACTIVE PROTEIN INCREASED [None]
  - CARDIAC FAILURE [None]
  - HYPOTHYROIDISM [None]
  - LUNG INFECTION [None]
  - SUPERINFECTION [None]
